FAERS Safety Report 23091487 (Version 1)
Quarter: 2023Q4

REPORT INFORMATION
  Report Type: Spontaneous
  Country: NO (occurrence: NO)
  Receive Date: 20231020
  Receipt Date: 20231020
  Transmission Date: 20240110
  Serious: Yes (Hospitalization, Other)
  Sender: FDA-Public Use
  Company Number: NO-Covis Pharma Europe B.V.-2023COV01722

PATIENT
  Age: 34 Year
  Sex: Female
  Weight: 63 kg

DRUGS (7)
  1. ALVESCO [Suspect]
     Active Substance: CICLESONIDE
     Route: 065
  2. METHOTREXATE [Suspect]
     Active Substance: METHOTREXATE
  3. RAMIPRIL [Suspect]
     Active Substance: RAMIPRIL
     Indication: Cardiac failure
     Dates: start: 2022
  4. NASONEX [Suspect]
     Active Substance: MOMETASONE FUROATE
  5. SOTALOL [Suspect]
     Active Substance: SOTALOL
  6. DESOGESTREL [Suspect]
     Active Substance: DESOGESTREL
  7. INSPRA [Suspect]
     Active Substance: EPLERENONE
     Indication: Cardiac failure
     Route: 048
     Dates: start: 20230920

REACTIONS (4)
  - Disorientation [Recovering/Resolving]
  - Akathisia [Recovering/Resolving]
  - Poisoning [Recovering/Resolving]
  - Drug interaction [Recovering/Resolving]

NARRATIVE: CASE EVENT DATE: 20230926
